FAERS Safety Report 16633846 (Version 1)
Quarter: 2019Q3

REPORT INFORMATION
  Report Type: Spontaneous
  Country: US (occurrence: US)
  Receive Date: 20190725
  Receipt Date: 20190725
  Transmission Date: 20191004
  Serious: Yes (Hospitalization, Disabling)
  Sender: FDA-Public Use
  Company Number: None

PATIENT
  Age: 84 Year
  Sex: Male

DRUGS (2)
  1. DONEPEZIL HYDROCHLORIDE. [Suspect]
     Active Substance: DONEPEZIL HYDROCHLORIDE
     Indication: MEMORY IMPAIRMENT
     Route: 048
     Dates: start: 20190508, end: 20190719
  2. DONEPEZIL HYDROCHLORIDE. [Concomitant]
     Active Substance: DONEPEZIL HYDROCHLORIDE
     Dates: start: 20190509, end: 20190719

REACTIONS (9)
  - Urinary tract obstruction [None]
  - Dysstasia [None]
  - Fall [None]
  - Head injury [None]
  - Balance disorder [None]
  - Haemorrhage [None]
  - Gait inability [None]
  - Joint injury [None]
  - Prostatomegaly [None]
